FAERS Safety Report 7356062-5 (Version None)
Quarter: 2011Q1

REPORT INFORMATION
  Report Type: 
  Country: None (occurrence: None)
  Receive Date: 20110316
  Receipt Date: 20110307
  Transmission Date: 20110831
  Serious: Yes (Other)
  Sender: FDA-Public Use
  Company Number: US-ELI_LILLY_AND_COMPANY-US201102002421

PATIENT
  Sex: Female
  Weight: 67.12 kg

DRUGS (16)
  1. VITAMIN D [Concomitant]
     Dosage: UNK, UNKNOWN
  2. CYMBALTA [Suspect]
     Dosage: 60 MG, DAILY (1/D)
     Route: 048
  3. CYMBALTA [Suspect]
     Dosage: 90 MG, DAILY (1/D)
  4. LYRICA [Concomitant]
     Indication: NEURALGIA
     Dosage: 300 MG, DAILY (1/D)
     Route: 048
  5. KLONOPIN [Concomitant]
     Indication: ANXIETY
     Dosage: 0.5 MG, 2/D
  6. FENTANYL [Concomitant]
     Dosage: 50 UG, 3/W
     Route: 062
     Dates: start: 20050101
  7. KLONOPIN [Concomitant]
     Dosage: 2 MG, DAILY (1/D)
     Route: 048
  8. CYMBALTA [Suspect]
     Indication: DEPRESSION
     Dosage: 90 MG, DAILY (1/D)
     Route: 048
  9. PREVACID [Concomitant]
  10. TRAZODONE [Concomitant]
  11. FENTANYL [Concomitant]
     Indication: BACK PAIN
     Dosage: 1 D/F, 3/W
     Route: 062
     Dates: start: 20050101
  12. PERCOCET [Concomitant]
  13. VITAMIN D [Concomitant]
     Dosage: 50000 IU, WEEKLY (1/W)
     Dates: start: 20101130
  14. LEVOTHYROXINE [Concomitant]
  15. DURAGESIC-50 [Concomitant]
     Dosage: 1 D/F, OTHER
  16. ATROVENT [Concomitant]
     Indication: RHINORRHOEA
     Dosage: UNK, 2/D
     Dates: start: 20070101

REACTIONS (50)
  - LOSS OF CONSCIOUSNESS [None]
  - CHILLS [None]
  - DIZZINESS [None]
  - HEADACHE [None]
  - MALAISE [None]
  - ASTHENIA [None]
  - PARAESTHESIA [None]
  - DYSPHONIA [None]
  - IRRITABILITY [None]
  - CONFUSIONAL STATE [None]
  - FALL [None]
  - DECREASED APPETITE [None]
  - VISUAL IMPAIRMENT [None]
  - COORDINATION ABNORMAL [None]
  - HYPERHIDROSIS [None]
  - DIPLOPIA [None]
  - ARTHRALGIA [None]
  - BACK PAIN [None]
  - EYELID DISORDER [None]
  - URINARY INCONTINENCE [None]
  - MUSCLE RIGIDITY [None]
  - FLATULENCE [None]
  - GAIT DISTURBANCE [None]
  - FATIGUE [None]
  - FEELING HOT [None]
  - HYPOAESTHESIA [None]
  - SLEEP DISORDER [None]
  - POLLAKIURIA [None]
  - MYALGIA [None]
  - IMPAIRED HEALING [None]
  - ANXIETY [None]
  - MUSCLE SPASMS [None]
  - OEDEMA PERIPHERAL [None]
  - DISTURBANCE IN ATTENTION [None]
  - VERTIGO [None]
  - DYSPHORIA [None]
  - FEELING ABNORMAL [None]
  - MICTURITION URGENCY [None]
  - SEXUAL DYSFUNCTION [None]
  - DEPRESSION [None]
  - TEMPERATURE INTOLERANCE [None]
  - CONTUSION [None]
  - CHEST PAIN [None]
  - BALANCE DISORDER [None]
  - LUMBAR SPINAL STENOSIS [None]
  - FOREIGN BODY [None]
  - WEIGHT DECREASED [None]
  - VISION BLURRED [None]
  - NIGHT SWEATS [None]
  - PRURITUS [None]
